FAERS Safety Report 8972854 (Version 1)
Quarter: 2012Q4

REPORT INFORMATION
  Report Type: Spontaneous
  Country: US (occurrence: None)
  Receive Date: 20121210
  Receipt Date: 20121210
  Transmission Date: 20130627
  Serious: Yes (Hospitalization)
  Sender: FDA-Public Use
  Company Number: 2012-8088

PATIENT
  Age: 41 Year
  Sex: Female

DRUGS (3)
  1. DYSPORT [Suspect]
     Indication: GLABELLAR FROWN LINES
     Dosage: 90 Units, 1 in 1 cycle(s), unknown
     Dates: start: 20121119, end: 20121119
  2. DYSPORT [Suspect]
     Indication: CROW^S FEET
     Dosage: 90 Units, 1 in 1 cycle(s), unknown
     Dates: start: 20121119, end: 20121119
  3. DYSPORT [Suspect]
     Dosage: 90 Units, 1 in 1 cycle(s), unknown
     Dates: start: 20121119, end: 20121119

REACTIONS (2)
  - Muscular weakness [None]
  - Pain [None]
